FAERS Safety Report 5179446-2 (Version None)
Quarter: 2006Q4

REPORT INFORMATION
  Report Type: 
  Country: None (occurrence: None)
  Receive Date: 20061211
  Receipt Date: 20061127
  Transmission Date: 20070319
  Serious: Yes (Life-Threatening, Hospitalization, Other)
  Sender: FDA-Public Use
  Company Number: FR-2006-037400

PATIENT
  Age: 80 Year
  Sex: Male

DRUGS (11)
  1. SOTALOL HYDROCHLORIDE [Suspect]
     Indication: DRUG USE FOR UNKNOWN INDICATION
     Dosage: 40 MG, 2X/DAY, ORAL
     Route: 048
     Dates: start: 20061020, end: 20061101
  2. LASIX [Suspect]
     Indication: DRUG USE FOR UNKNOWN INDICATION
     Dosage: 500 MG, 2X/DAY
     Dates: end: 20061101
  3. VASTAREL ^BIOPHARMA^ (TRIMETAZIDINE HYDROCHLORIDE) [Concomitant]
  4. IKOREL (NICORANDIL) [Concomitant]
  5. OMEPRAZOLE [Concomitant]
  6. KARDEGIC /FRA/ (ACETYLSALICYLATE LYSINE) [Concomitant]
  7. LEVOTHYROXINE SODIUM [Concomitant]
  8. PLAVIX [Concomitant]
  9. ATORVASTATIN CALCIUM [Concomitant]
  10. NITRODERM [Concomitant]
  11. ALLOPURINOL SODIUM [Concomitant]

REACTIONS (16)
  - ATRIAL FIBRILLATION [None]
  - BRADYCARDIA [None]
  - BUNDLE BRANCH BLOCK RIGHT [None]
  - DEPRESSED LEVEL OF CONSCIOUSNESS [None]
  - ELECTROCARDIOGRAM QT PROLONGED [None]
  - HAEMODYNAMIC INSTABILITY [None]
  - HYPOKALAEMIA [None]
  - LACUNAR INFARCTION [None]
  - LUNG DISORDER [None]
  - MUSCLE SPASTICITY [None]
  - POST PROCEDURAL HAEMATOMA [None]
  - SEPTIC SHOCK [None]
  - SHOCK HAEMORRHAGIC [None]
  - TORSADE DE POINTES [None]
  - VENTRICULAR EXTRASYSTOLES [None]
  - VENTRICULAR FIBRILLATION [None]
